FAERS Safety Report 6200211-9 (Version None)
Quarter: 2009Q2

REPORT INFORMATION
  Report Type: 
  Country: None (occurrence: None)
  Receive Date: 20090522
  Receipt Date: 20090512
  Transmission Date: 20091009
  Serious: Yes (Other)
  Sender: FDA-Public Use
  Company Number: CA-JNJFOC-20090502484

PATIENT
  Sex: Male

DRUGS (5)
  1. PREZISTA [Suspect]
     Indication: HIV INFECTION
  2. INTELENCE [Suspect]
     Indication: HIV INFECTION
     Route: 048
  3. VIDEX [Suspect]
     Indication: HIV INFECTION
     Route: 065
  4. SUSTIVA [Suspect]
     Indication: HIV INFECTION
     Route: 065
  5. ZERIT [Suspect]
     Indication: HIV INFECTION
     Route: 065

REACTIONS (3)
  - LIVER DISORDER [None]
  - RASH [None]
  - RENAL DISORDER [None]
